FAERS Safety Report 8699553 (Version 6)
Quarter: 2014Q1

REPORT INFORMATION
  Report Type: Spontaneous
  Country: US (occurrence: US)
  Receive Date: 20120802
  Receipt Date: 20140318
  Transmission Date: 20141002
  Serious: Yes (Other)
  Sender: FDA-Public Use
  Company Number: US-JNJFOC-20120715203

PATIENT
  Age: 55 Year
  Sex: Female
  Weight: 79.83 kg

DRUGS (39)
  1. REMICADE [Suspect]
     Indication: RHEUMATOID ARTHRITIS
     Route: 042
     Dates: start: 20060127, end: 20100111
  2. REMICADE [Suspect]
     Indication: RHEUMATOID ARTHRITIS
     Route: 042
     Dates: start: 20110608, end: 20120104
  3. REMICADE [Suspect]
     Indication: RHEUMATOID ARTHRITIS
     Route: 042
     Dates: end: 20060127
  4. REMICADE [Suspect]
     Indication: RHEUMATOID ARTHRITIS
     Route: 042
     Dates: start: 200301
  5. REMICADE [Suspect]
     Indication: RHEUMATOID ARTHRITIS
     Route: 042
     Dates: start: 201111, end: 201202
  6. ZITHROMAX [Concomitant]
     Route: 065
     Dates: start: 20070115, end: 20070131
  7. METHOTREXATE SODIUM [Concomitant]
     Route: 065
     Dates: end: 20061107
  8. METHOTREXATE SODIUM [Concomitant]
     Route: 065
     Dates: start: 20070716
  9. METHOTREXATE SODIUM [Concomitant]
     Route: 065
     Dates: start: 20061107, end: 20070716
  10. METHOTREXATE [Concomitant]
     Indication: RHEUMATOID ARTHRITIS
     Route: 065
     Dates: start: 20120227, end: 20130402
  11. METHOTREXATE [Concomitant]
     Indication: RHEUMATOID ARTHRITIS
     Route: 065
     Dates: start: 20120220, end: 20130402
  12. ADVIL [Concomitant]
     Route: 065
  13. ALBUTEROL [Concomitant]
     Dosage: 2 PUFFS 3-4 HOURS PRN
     Route: 065
     Dates: start: 20070115, end: 20070225
  14. ALBUTEROL [Concomitant]
     Dosage: 90MCG/INH 2 PUFFS EVERY 3-4 HOURS PRN
     Route: 065
     Dates: start: 20080219, end: 20080910
  15. AMOXICILLIN [Concomitant]
     Route: 065
     Dates: start: 20091110, end: 20091201
  16. CEPHALEXIN [Concomitant]
     Route: 065
     Dates: start: 20090311, end: 20090329
  17. CEPHALEXIN [Concomitant]
     Route: 065
     Dates: start: 20061117, end: 20061208
  18. ALUMINIUM CHLORIDE [Concomitant]
     Route: 065
     Dates: start: 20101111, end: 20101222
  19. DYAZIDE [Concomitant]
     Dosage: 25MG - 37.5MG
     Route: 065
     Dates: start: 20060119, end: 20060516
  20. FOLIC ACID [Concomitant]
     Route: 065
     Dates: end: 20061107
  21. FOLIC ACID [Concomitant]
     Route: 065
     Dates: start: 20110810
  22. FOLIC ACID [Concomitant]
     Route: 065
     Dates: start: 20061107, end: 20070716
  23. FOLIC ACID [Concomitant]
     Route: 065
     Dates: start: 20070616, end: 20110810
  24. LEVAQUIN [Concomitant]
     Route: 065
     Dates: start: 20080312, end: 20080330
  25. PLAQUENIL [Concomitant]
     Route: 065
     Dates: end: 20060823
  26. POLYMYXIN W/TRIMETHOPRIM [Concomitant]
     Dosage: 10000U, 1 DROP EVERY 3 HOURS
     Route: 065
     Dates: start: 20091110, end: 20091129
  27. PREDNISONE [Concomitant]
     Route: 065
     Dates: end: 20060405
  28. PREDNISONE [Concomitant]
     Route: 065
     Dates: start: 20060405, end: 20060822
  29. PREDNISONE [Concomitant]
     Route: 065
     Dates: start: 20060822, end: 20061107
  30. PREDNISONE [Concomitant]
     Route: 065
     Dates: start: 20061107, end: 20070620
  31. PREDNISONE [Concomitant]
     Route: 065
     Dates: start: 20070716, end: 20080910
  32. ROBITUSSIN A-C [Concomitant]
     Dosage: 10MG - 100MG/5 ML 1 - 2 TEASPOONS FOR EVERY 4-6 HOURS
     Route: 065
     Dates: start: 20080219, end: 20080910
  33. TEMOVATE [Concomitant]
     Route: 065
     Dates: start: 20100716, end: 20100824
  34. TEMOVATE [Concomitant]
     Route: 065
     Dates: start: 20100716, end: 20100824
  35. TEMOVATE [Concomitant]
     Route: 065
     Dates: start: 20101115, end: 20101224
  36. TESSALON PERLES [Concomitant]
     Route: 065
     Dates: start: 20081205, end: 20090710
  37. TRAZODONE [Concomitant]
     Dosage: 2-3 TABLET EVERY HS
     Route: 065
     Dates: start: 20060119, end: 20080910
  38. TRAZODONE [Concomitant]
     Dosage: ONE-HALF-1 TABLET
     Route: 065
     Dates: end: 20060119
  39. IBUPROFEN [Concomitant]
     Dosage: P.R.N
     Route: 065

REACTIONS (4)
  - Intraductal proliferative breast lesion [Recovering/Resolving]
  - Blood pressure increased [Unknown]
  - Actinic keratosis [Recovering/Resolving]
  - Squamous cell carcinoma [Unknown]
